FAERS Safety Report 18045096 (Version 1)
Quarter: 2020Q3

REPORT INFORMATION
  Report Type: Spontaneous
  Country: FR (occurrence: FR)
  Receive Date: 20200720
  Receipt Date: 20200720
  Transmission Date: 20201103
  Serious: Yes (Hospitalization, Other)
  Sender: FDA-Public Use
  Company Number: FR-PFIZER INC-2020275389

PATIENT
  Age: 65 Year
  Sex: Male
  Weight: 90 kg

DRUGS (2)
  1. TRIATEC (RAMIPRIL) [Suspect]
     Active Substance: RAMIPRIL
     Indication: NEPHROPATHY
     Dosage: 10 MG, 1X/DAY
     Route: 048
     Dates: end: 20200624
  2. PROFENID [Interacting]
     Active Substance: KETOPROFEN
     Indication: RENAL COLIC
     Dosage: 100 MG, TOTAL
     Route: 048
     Dates: start: 20200620, end: 20200620

REACTIONS (3)
  - Acute kidney injury [Not Recovered/Not Resolved]
  - Renal tubular necrosis [Not Recovered/Not Resolved]
  - Drug interaction [Unknown]

NARRATIVE: CASE EVENT DATE: 20200624
